FAERS Safety Report 5422499-4 (Version None)
Quarter: 2007Q3

REPORT INFORMATION
  Report Type: 
  Country: None (occurrence: None)
  Receive Date: 20070822
  Receipt Date: 20070821
  Transmission Date: 20080115
  Serious: Yes (Other)
  Sender: FDA-Public Use
  Company Number: A0673891A

PATIENT
  Age: 42 Year
  Sex: Female

DRUGS (13)
  1. NICORETTE [Suspect]
     Indication: SMOKING CESSATION THERAPY
     Route: 002
     Dates: start: 20070703
  2. NICORETTE [Suspect]
     Route: 002
  3. NICOTINE [Suspect]
     Indication: SMOKING CESSATION THERAPY
     Route: 062
     Dates: start: 20070703
  4. NICORETTE [Suspect]
     Indication: SMOKING CESSATION THERAPY
     Route: 060
     Dates: start: 20070703
  5. CIPRALEX [Concomitant]
  6. LORAZEPAM [Concomitant]
  7. TENOX [Concomitant]
  8. LEPONEX [Concomitant]
  9. TOPIMAX [Concomitant]
  10. ABILIFY [Concomitant]
  11. BECLOMET [Concomitant]
  12. SINGULAIR [Concomitant]
  13. NITROGLYCERIN [Concomitant]

REACTIONS (6)
  - ANGINA PECTORIS [None]
  - CARDIAC DISORDER [None]
  - CHEST PAIN [None]
  - DYSPNOEA [None]
  - FEAR [None]
  - PANIC DISORDER [None]
